FAERS Safety Report 5977655-3 (Version None)
Quarter: 2008Q4

REPORT INFORMATION
  Report Type: 
  Country: None (occurrence: None)
  Receive Date: 20081125
  Receipt Date: 20081110
  Transmission Date: 20090506
  Serious: Yes (Other)
  Sender: FDA-Public Use
  Company Number: 17081

PATIENT
  Age: 24 Year
  Sex: Female

DRUGS (4)
  1. NATAL CARE (R) PLUS TABLETS (ETHEX CORP.) [Suspect]
     Indication: MINERAL SUPPLEMENTATION
     Dates: start: 20071201, end: 20080201
  2. NATAL CARE (R) PLUS TABLETS (ETHEX CORP.) [Suspect]
     Indication: VITAMIN SUPPLEMENTATION
     Dates: start: 20071201, end: 20080201
  3. NATAL CARE (R) PLUS TABLETS (ETHEX CORP.) [Suspect]
     Indication: MINERAL SUPPLEMENTATION
     Dates: start: 20080901, end: 20081001
  4. NATAL CARE (R) PLUS TABLETS (ETHEX CORP.) [Suspect]
     Indication: VITAMIN SUPPLEMENTATION
     Dates: start: 20080901, end: 20081001

REACTIONS (2)
  - ABORTION SPONTANEOUS [None]
  - DRUG EXPOSURE DURING PREGNANCY [None]
